FAERS Safety Report 7391736-1 (Version None)
Quarter: 2011Q2

REPORT INFORMATION
  Report Type: 
  Country: None (occurrence: None)
  Receive Date: 20110404
  Receipt Date: 20110329
  Transmission Date: 20111010
  Serious: Yes (Hospitalization, Other)
  Sender: FDA-Public Use
  Company Number: FR-PFIZER INC-2011069332

PATIENT
  Age: 61 Year
  Sex: Male

DRUGS (4)
  1. MEDIATENSYL [Concomitant]
     Dosage: 30 MG CAPSULE, 60 MG DAILY
     Route: 048
  2. SALAZOPYRINE [Suspect]
     Indication: PROCTOCOLITIS
     Dosage: 500 MG, 4X/DAY
     Route: 048
     Dates: start: 20110111, end: 20110220
  3. QUADRASA [Concomitant]
     Dosage: 2 G, 1X/DAY
     Route: 054
  4. SOLUPRED [Concomitant]
     Dosage: UNK

REACTIONS (10)
  - DRUG RASH WITH EOSINOPHILIA AND SYSTEMIC SYMPTOMS [None]
  - PYREXIA [None]
  - RASH MACULO-PAPULAR [None]
  - FACE OEDEMA [None]
  - SKIN LESION [None]
  - GENERALISED ERYTHEMA [None]
  - PRURITUS [None]
  - EOSINOPHILIA [None]
  - CONJUNCTIVITIS [None]
  - RENAL FAILURE ACUTE [None]
